FAERS Safety Report 4352489-4 (Version None)
Quarter: 2004Q2

REPORT INFORMATION
  Report Type: 
  Country: None (occurrence: None)
  Receive Date: 20040503
  Receipt Date: 20040503
  Transmission Date: 20050107
  Serious: Yes (Death)
  Sender: FDA-Public Use
  Company Number: None

PATIENT
  Age: 83 Year
  Sex: Male

DRUGS (13)
  1. WARFARIN SODIUM [Suspect]
     Indication: DEEP VEIN THROMBOSIS
     Dosage: 5MG QD EXCEPT SAT/SUN 2.5 MG
     Dates: start: 19950101
  2. CIPRO [Concomitant]
  3. LOVASTATIN [Concomitant]
  4. OXYBUTYNIN [Concomitant]
  5. KCL TAB [Concomitant]
  6. TYLENOL W/ CODEINE NO. 3 [Concomitant]
  7. ZANTAC [Concomitant]
  8. TERAZOSIN HCL [Concomitant]
  9. HYDROXYZINE [Concomitant]
  10. VERAPAMIL [Concomitant]
  11. DOCUSATE [Concomitant]
  12. LISINOPRIL [Concomitant]
  13. FERROUS GLUCONATE [Concomitant]

REACTIONS (6)
  - BRADYCARDIA [None]
  - CARDIO-RESPIRATORY ARREST [None]
  - HAEMATEMESIS [None]
  - HYPOTENSION [None]
  - HYPOXIA [None]
  - INTERNATIONAL NORMALISED RATIO INCREASED [None]
